FAERS Safety Report 24085767 (Version 5)
Quarter: 2024Q3

REPORT INFORMATION
  Report Type: Spontaneous
  Country: ES (occurrence: ES)
  Receive Date: 20240712
  Receipt Date: 20240826
  Transmission Date: 20241016
  Serious: Yes (Death, Life-Threatening, Hospitalization, Other)
  Sender: JOHNSON AND JOHNSON
  Company Number: ES-JNJFOC-20240725253

PATIENT
  Age: 61 Year
  Sex: Female

DRUGS (1)
  1. SPRAVATO [Suspect]
     Active Substance: ESKETAMINE
     Indication: Major depression
     Dosage: 08-JUL-2024 : 17TH SESSION
     Dates: start: 20240409, end: 20240708

REACTIONS (2)
  - Completed suicide [Fatal]
  - Somnolence [Unknown]

NARRATIVE: CASE EVENT DATE: 20240708
